FAERS Safety Report 5103677-0 (Version None)
Quarter: 2006Q3

REPORT INFORMATION
  Report Type: 
  Country: None (occurrence: None)
  Receive Date: 20060911
  Receipt Date: 20060911
  Transmission Date: 20061208
  Serious: No
  Sender: FDA-Public Use
  Company Number: None

PATIENT
  Sex: Female

DRUGS (4)
  1. MINOCYCLINE HCL [Suspect]
     Indication: RHEUMATOID ARTHRITIS
     Dosage: 100 MG TWICE DAILY PO
     Route: 048
     Dates: start: 19940101, end: 20040101
  2. PREDNISONE TAB [Concomitant]
  3. LASIX [Concomitant]
  4. ATENOLOL [Concomitant]

REACTIONS (2)
  - DRUG EFFECT DECREASED [None]
  - THERAPEUTIC RESPONSE UNEXPECTED WITH DRUG SUBSTITUTION [None]
